FAERS Safety Report 22879679 (Version 3)
Quarter: 2024Q1

REPORT INFORMATION
  Report Type: Spontaneous
  Country: BG (occurrence: BG)
  Receive Date: 20230829
  Receipt Date: 20240122
  Transmission Date: 20240410
  Serious: Yes (Hospitalization, Disabling, Other)
  Sender: FDA-Public Use
  Company Number: BG-CHEPLA-2023009727

PATIENT
  Age: 86 Year
  Sex: Male

DRUGS (17)
  1. OLANZAPINE [Suspect]
     Active Substance: OLANZAPINE
     Indication: Product used for unknown indication
     Dosage: 5 MILLIGRAM, QD(HALF A TABLET DAILY FROM 6 YEARS)
     Route: 048
  2. BISOPROLOL FUMARATE [Suspect]
     Active Substance: BISOPROLOL FUMARATE
     Indication: Hypertension
     Dosage: 10 MILLIGRAM, BID (2 TIMES HALF A TABLET)
     Route: 048
     Dates: start: 20170615, end: 20230816
  3. BISOPROLOL FUMARATE [Suspect]
     Active Substance: BISOPROLOL FUMARATE
     Indication: Atrial fibrillation
  4. VENLAFAXINE HYDROCHLORIDE [Suspect]
     Active Substance: VENLAFAXINE HYDROCHLORIDE
     Indication: Product used for unknown indication
     Dosage: 75 MILLIGRAM BID (2 TIMES ONE TABLET DAILY)
     Route: 048
  5. PREGABALIN [Concomitant]
     Active Substance: PREGABALIN
     Indication: Product used for unknown indication
     Dosage: 75 MILLIGRAM, QD (ONE TABLET DAILY, FROM 6 YEARS)
     Route: 065
  6. Hedonin [Concomitant]
     Indication: Product used for unknown indication
     Dosage: IN EVENING 1-2 TAB, Q2D FOR 5-6 YEARS
     Route: 048
  7. ELIQUIS [Concomitant]
     Active Substance: APIXABAN
     Indication: Atrial fibrillation
     Dosage: 5 MILLIGRAM, BID (2 TIMES HALF A TABLET)
     Route: 048
  8. ELIQUIS [Concomitant]
     Active Substance: APIXABAN
     Indication: Hypertension
  9. BROMAZEPAM [Concomitant]
     Active Substance: BROMAZEPAM
     Indication: Product used for unknown indication
     Dosage: 3 MILLIGRAM, Q2D (IN THE EVENING ONE OR HALF TAB)
     Route: 048
  10. BROMAZEPAM [Concomitant]
     Active Substance: BROMAZEPAM
     Dosage: IN THE EVENING ONE OR HALF A TABLET, EVERY 2 DAYS / FROM 30 YEARS
     Route: 065
  11. BROMAZEPAM [Concomitant]
     Active Substance: BROMAZEPAM
     Dosage: IN THE EVENING ONE OR HALF A TABLET, EVERY 2 DAYS / FROM 30 YEARS
     Route: 065
  12. NEXIUM [Concomitant]
     Active Substance: ESOMEPRAZOLE MAGNESIUM
     Indication: Product used for unknown indication
     Dosage: 40 MILLIGRAM, QD (ONCE DAILY HALF A TABLET)
     Route: 048
  13. NEXIUM [Concomitant]
     Active Substance: ESOMEPRAZOLE MAGNESIUM
     Dosage: ONCE DAILY HALF A TABLET / FROM 2 YEARS
     Route: 065
  14. DIGOXIN [Concomitant]
     Active Substance: DIGOXIN
     Indication: Atrial fibrillation
     Dosage: 0.5 DOSAGE FORM, QD (1 TIME DAILY HALF A TABLET)
     Route: 048
  15. DIGOXIN [Concomitant]
     Active Substance: DIGOXIN
     Indication: Hypertension
  16. ZOPICLONE [Concomitant]
     Active Substance: ZOPICLONE
     Indication: Product used for unknown indication
     Dosage: (ONE HALF TO ONE TABLET EVERY TWO DAYS)
     Route: 048
  17. ZOPICLONE [Concomitant]
     Active Substance: ZOPICLONE
     Dosage: (ONE HALF TO ONE TABLET EVERY TWO DAYS)
     Route: 048

REACTIONS (6)
  - Skin lesion [Unknown]
  - Melanocytic naevus [Unknown]
  - Dysplastic naevus [Recovered/Resolved with Sequelae]
  - Bowen^s disease [Unknown]
  - Basal cell carcinoma [Recovered/Resolved]
  - Adenoma benign [Recovered/Resolved with Sequelae]
